FAERS Safety Report 21856539 (Version 3)
Quarter: 2023Q1

REPORT INFORMATION
  Report Type: Report from Study
  Country: CA (occurrence: CA)
  Receive Date: 20230112
  Receipt Date: 20230301
  Transmission Date: 20230418
  Serious: Yes (Hospitalization, Other)
  Sender: FDA-Public Use
  Company Number: CA-JNJFOC-20221229748

PATIENT
  Age: 58 Year
  Sex: Female

DRUGS (2)
  1. STELARA [Suspect]
     Active Substance: USTEKINUMAB
     Indication: Crohn^s disease
     Route: 058
  2. STELARA [Suspect]
     Active Substance: USTEKINUMAB

REACTIONS (5)
  - Postoperative wound infection [Recovering/Resolving]
  - Pneumonia bacterial [Recovered/Resolved]
  - Intestinal resection [Recovering/Resolving]
  - Weight decreased [Unknown]
  - Inflammation [Unknown]

NARRATIVE: CASE EVENT DATE: 20221221
